FAERS Safety Report 10381515 (Version 1)
Quarter: 2014Q1

REPORT INFORMATION
  Report Type: Spontaneous
  Country: US (occurrence: None)
  Receive Date: 20140306
  Receipt Date: 20140306
  Transmission Date: 20141002
  Serious: Yes (Other)
  Sender: FDA-Public Use
  Company Number: 163-21880-13106053

PATIENT
  Age: 61 Year
  Sex: Female
  Weight: 73.48 kg

DRUGS (8)
  1. REVLIMID (LENALIDOMIDE) (25 MILLIGRAM, CAPSULES) [Suspect]
     Indication: PLASMA CELL MYELOMA
     Dosage: 25 MG, 1 IN 1 D, PO,  10/24/2013 - UNKNOWN THERAPY
     Route: 048
     Dates: start: 20131024
  2. HUMALOG (INSULIN LISPOR) [Concomitant]
  3. SYNTHROID (LEVOTHRYROXINE SODIUM) [Concomitant]
  4. DIOVAN(VALSARTAN) [Concomitant]
  5. GABAPENTIN [Concomitant]
  6. DILTIAZEM [Concomitant]
  7. ASPRIN (ACETYLSALICYLIC ACID) [Concomitant]
  8. IMODIUM (LOPERAMIDE) [Concomitant]

REACTIONS (2)
  - Back pain [None]
  - Musculoskeletal chest pain [None]
